FAERS Safety Report 12590310 (Version 4)
Quarter: 2016Q4

REPORT INFORMATION
  Report Type: Spontaneous
  Country: RU (occurrence: RU)
  Receive Date: 20160725
  Receipt Date: 20161024
  Transmission Date: 20170207
  Serious: Yes (Hospitalization, Other)
  Sender: FDA-Public Use
  Company Number: RU-ALLERGAN-1663603US

PATIENT
  Age: 71 Year
  Sex: Male

DRUGS (1)
  1. GANFORT [Suspect]
     Active Substance: BIMATOPROST\TIMOLOL
     Indication: ANGLE CLOSURE GLAUCOMA
     Dosage: 2 GTT, QD
     Route: 047
     Dates: start: 201512, end: 20160718

REACTIONS (4)
  - Optic atrophy [Unknown]
  - Retinal detachment [Unknown]
  - Presbyopia [Unknown]
  - Dry eye [Unknown]

NARRATIVE: CASE EVENT DATE: 20160718
